FAERS Safety Report 9954643 (Version 2)
Quarter: 2014Q1

REPORT INFORMATION
  Report Type: Report from Study
  Country: US (occurrence: US)
  Receive Date: 20140304
  Receipt Date: 20140304
  Transmission Date: 20141002
  Serious: Yes (Hospitalization)
  Sender: FDA-Public Use
  Company Number: US-ABBVIE-13P-163-1063092-00

PATIENT
  Age: 50 Year
  Sex: Male
  Weight: 95.34 kg

DRUGS (10)
  1. HUMIRA [Suspect]
     Indication: PSORIASIS
     Dates: start: 201009, end: 201110
  2. HUMIRA [Suspect]
     Dates: start: 201211
  3. METHYLCARBAMOYL [Concomitant]
     Indication: MUSCLE SPASMS
  4. OMEPRAZOLE [Concomitant]
     Indication: GASTRIC ULCER
  5. FUROSEMIDE [Concomitant]
     Indication: BLOOD PRESSURE
  6. ELIDEL [Concomitant]
     Indication: PSORIASIS
  7. CLOBETASOL [Concomitant]
     Indication: PSORIASIS
  8. DESOXIMETASONE [Concomitant]
     Indication: PSORIASIS
  9. VALIUM [Concomitant]
     Indication: PRODUCT USED FOR UNKNOWN INDICATION
  10. AMLODIPINE [Concomitant]
     Indication: PRODUCT USED FOR UNKNOWN INDICATION

REACTIONS (8)
  - Wrist fracture [Unknown]
  - Upper limb fracture [Unknown]
  - Cystitis [Not Recovered/Not Resolved]
  - Decubitus ulcer [Recovered/Resolved]
  - Cough [Unknown]
  - Pulmonary congestion [Unknown]
  - Musculoskeletal pain [Unknown]
  - Psoriasis [Unknown]
